FAERS Safety Report 5332527-2 (Version None)
Quarter: 2007Q2

REPORT INFORMATION
  Report Type: 
  Country: None (occurrence: None)
  Receive Date: 20070518
  Receipt Date: 20070514
  Transmission Date: 20071010
  Serious: Yes (Life-Threatening)
  Sender: FDA-Public Use
  Company Number: 2007-158716-NL

PATIENT
  Age: 31 Year
  Sex: Female

DRUGS (4)
  1. FOLLITROPIN BETA [Suspect]
     Indication: IN VITRO FERTILISATION
     Dosage: 150 IU QD/75 IU QD
     Route: 058
     Dates: end: 20070119
  2. FOLLITROPIN BETA [Suspect]
     Indication: IN VITRO FERTILISATION
     Dosage: 150 IU QD/75 IU QD
     Route: 058
     Dates: start: 20070111
  3. GANIRELIX ACETATE INJECTION [Suspect]
     Indication: IN VITRO FERTILISATION
     Dosage: 0.25 MG QD
     Route: 058
     Dates: start: 20070116, end: 20070119
  4. CHORIONIC GONADTROPIN [Suspect]
     Indication: IN VITRO FERTILISATION
     Dosage: 250 UG ONCE
     Route: 058
     Dates: start: 20070120, end: 20070120

REACTIONS (4)
  - DEEP VEIN THROMBOSIS [None]
  - DRUG EXPOSURE DURING PREGNANCY [None]
  - JUGULAR VEIN THROMBOSIS [None]
  - METRORRHAGIA [None]
